FAERS Safety Report 7643032-2 (Version None)
Quarter: 2011Q3

REPORT INFORMATION
  Report Type: 
  Country: None (occurrence: None)
  Receive Date: 20110728
  Receipt Date: 20110719
  Transmission Date: 20111222
  Serious: Yes (Hospitalization)
  Sender: FDA-Public Use
  Company Number: US-RB-026475-11

PATIENT
  Age: 48 Year
  Sex: Female

DRUGS (2)
  1. SUBOXONE [Suspect]
     Indication: PRODUCT USED FOR UNKNOWN INDICATION
     Dosage: DOSAGE INFORMATION UNKNOWN- SUBLINGUAL FILM
     Route: 065
  2. SUBOXONE [Suspect]
     Indication: PRODUCT USED FOR UNKNOWN INDICATION
     Dosage: DOSAGE INFORMATION UNKNOWN
     Route: 065

REACTIONS (17)
  - CEREBROVASCULAR ACCIDENT [None]
  - COORDINATION ABNORMAL [None]
  - LOSS OF CONTROL OF LEGS [None]
  - LIMB INJURY [None]
  - FALL [None]
  - VASODILATATION [None]
  - CONDITION AGGRAVATED [None]
  - OEDEMA PERIPHERAL [None]
  - HEAD INJURY [None]
  - WOUND HAEMORRHAGE [None]
  - WEIGHT INCREASED [None]
  - TRIGEMINAL NEURALGIA [None]
  - LACERATION [None]
  - CARPAL TUNNEL SYNDROME [None]
  - JOINT STIFFNESS [None]
  - MEMORY IMPAIRMENT [None]
  - PAIN IN EXTREMITY [None]
